FAERS Safety Report 6734686-3 (Version None)
Quarter: 2010Q2

REPORT INFORMATION
  Report Type: 
  Country: None (occurrence: None)
  Receive Date: 20100519
  Receipt Date: 20100519
  Transmission Date: 20101027
  Serious: No
  Sender: FDA-Public Use
  Company Number: None

PATIENT
  Age: 62 Year
  Sex: Male
  Weight: 91.1 kg

DRUGS (2)
  1. LEXISCAN [Suspect]
     Indication: CARDIOVASCULAR DISORDER
     Dosage: 5 MG ONCE
     Dates: start: 20100305, end: 20100305
  2. LEXISCAN [Suspect]
     Indication: SURGERY
     Dosage: 5 MG ONCE
     Dates: start: 20100305, end: 20100305

REACTIONS (6)
  - BRADYCARDIA [None]
  - COLD SWEAT [None]
  - HEART RATE DECREASED [None]
  - HYPOTENSION [None]
  - NASOPHARYNGITIS [None]
  - STRESS [None]
